FAERS Safety Report 5205781-5 (Version None)
Quarter: 2007Q1

REPORT INFORMATION
  Report Type: 
  Country: None (occurrence: None)
  Receive Date: 20070111
  Receipt Date: 20070103
  Transmission Date: 20070707
  Serious: Yes (Hospitalization)
  Sender: FDA-Public Use
  Company Number: US-AMGEN-STX205626

PATIENT
  Sex: Male

DRUGS (1)
  1. ENBREL [Suspect]
     Indication: PSORIATIC ARTHROPATHY
     Route: 058
     Dates: start: 20051222

REACTIONS (6)
  - ANOREXIA [None]
  - CHEST PAIN [None]
  - DIARRHOEA [None]
  - GALLBLADDER OPERATION [None]
  - NAUSEA [None]
  - PAIN [None]
